FAERS Safety Report 25862591 (Version 3)
Quarter: 2025Q4

REPORT INFORMATION
  Report Type: Spontaneous
  Country: EU (occurrence: EU)
  Receive Date: 20250930
  Receipt Date: 20251015
  Transmission Date: 20260118
  Serious: Yes (Hospitalization)
  Sender: AUROBINDO
  Company Number: EU-MLMSERVICE-20250910-PI639918-00306-1

PATIENT
  Age: 78 Year
  Sex: Male
  Weight: 170 kg

DRUGS (6)
  1. RITONAVIR [Interacting]
     Active Substance: RITONAVIR
     Indication: Product used for unknown indication
     Dosage: UNK
     Route: 065
     Dates: start: 20240106
  2. RITONAVIR [Interacting]
     Active Substance: RITONAVIR
     Indication: COVID-19
  3. TACROLIMUS [Interacting]
     Active Substance: TACROLIMUS
     Indication: Product used for unknown indication
     Dosage: 1 DOSAGE FORM
     Route: 065
     Dates: start: 202401
  4. TACROLIMUS [Interacting]
     Active Substance: TACROLIMUS
     Indication: Congenital cystic kidney disease
  5. NIRMATRELVIR [Interacting]
     Active Substance: NIRMATRELVIR
     Indication: Product used for unknown indication
     Dosage: UNK
     Route: 065
     Dates: start: 20240106, end: 20240111
  6. NIRMATRELVIR [Interacting]
     Active Substance: NIRMATRELVIR
     Indication: COVID-19

REACTIONS (4)
  - Confusional state [Recovered/Resolved]
  - Asthenia [Recovered/Resolved]
  - Drug interaction [Recovered/Resolved]
  - Overdose [Recovered/Resolved]

NARRATIVE: CASE EVENT DATE: 20240101
